FAERS Safety Report 5261017-0 (Version None)
Quarter: 2007Q1

REPORT INFORMATION
  Report Type: 
  Country: None (occurrence: None)
  Receive Date: 20070309
  Receipt Date: 20070228
  Transmission Date: 20070707
  Serious: Yes (Other)
  Sender: FDA-Public Use
  Company Number: 2006UW08490

PATIENT
  Age: 801 Month
  Sex: Male
  Weight: 104.5 kg

DRUGS (4)
  1. SEROQUEL [Suspect]
     Indication: SCHIZOPHRENIA
     Route: 048
     Dates: start: 19980101, end: 20010101
  2. SEROQUEL [Suspect]
     Route: 048
     Dates: start: 20010101
  3. HALDOL [Concomitant]
     Dates: start: 19900101, end: 19950101
  4. THORAZINE [Concomitant]
     Dates: start: 19670101, end: 19690101

REACTIONS (2)
  - DIABETES MELLITUS [None]
  - DIABETIC KETOACIDOSIS [None]
